FAERS Safety Report 9268967 (Version 4)
Quarter: 2015Q2

REPORT INFORMATION
  Report Type: Report from Study
  Country: US (occurrence: US)
  Receive Date: 20130503
  Receipt Date: 20150529
  Transmission Date: 20150821
  Serious: Yes (Hospitalization, Other)
  Sender: FDA-Public Use
  Company Number: US-BIOGENIDEC-2013BI038396

PATIENT
  Age: 20 Year
  Sex: Female

DRUGS (1)
  1. TYSABRI [Suspect]
     Active Substance: NATALIZUMAB
     Indication: MULTIPLE SCLEROSIS
     Route: 042
     Dates: start: 20101201

REACTIONS (15)
  - Fatigue [Not Recovered/Not Resolved]
  - Prolactinoma [Recovered/Resolved]
  - Abdominal discomfort [Unknown]
  - Headache [Unknown]
  - Hepatic enzyme increased [Not Recovered/Not Resolved]
  - Amenorrhoea [Unknown]
  - Gallbladder disorder [Recovered/Resolved]
  - Hypoaesthesia [Unknown]
  - Vitamin D decreased [Unknown]
  - Joint dislocation [Recovered/Resolved]
  - Abdominal pain [Not Recovered/Not Resolved]
  - Fall [Not Recovered/Not Resolved]
  - Visual impairment [Not Recovered/Not Resolved]
  - Dissociation [Not Recovered/Not Resolved]
  - Depression [Not Recovered/Not Resolved]

NARRATIVE: CASE EVENT DATE: 20101201
